FAERS Safety Report 5064424-4 (Version None)
Quarter: 2006Q3

REPORT INFORMATION
  Report Type: 
  Country: None (occurrence: None)
  Receive Date: 20060728
  Receipt Date: 20060710
  Transmission Date: 20061208
  Serious: Yes (Other)
  Sender: FDA-Public Use
  Company Number: US-AMGEN-US185716

PATIENT
  Sex: Female
  Weight: 55.8 kg

DRUGS (7)
  1. ENBREL [Suspect]
     Indication: RHEUMATOID ARTHRITIS
     Route: 058
     Dates: start: 20030422
  2. PROTONIX [Concomitant]
     Dates: start: 20031201
  3. PATANOL [Concomitant]
     Route: 047
     Dates: start: 20060101
  4. RELAFEN [Concomitant]
     Route: 048
     Dates: start: 19990101
  5. FOLIC ACID [Concomitant]
     Dates: start: 19990101
  6. ACTONEL [Concomitant]
     Dates: start: 20041208
  7. PREMPRO 14/14 [Concomitant]

REACTIONS (2)
  - PNEUMONIA BACTERIAL [None]
  - TUBERCULOSIS SKIN TEST POSITIVE [None]
